FAERS Safety Report 24664716 (Version 1)
Quarter: 2024Q4

REPORT INFORMATION
  Report Type: Spontaneous
  Country: US (occurrence: US)
  Receive Date: 20241126
  Receipt Date: 20241126
  Transmission Date: 20250114
  Serious: Yes (Other)
  Sender: MYLAN
  Company Number: US-MYLANLABS-2024M1104938

PATIENT

DRUGS (1)
  1. LISDEXAMFETAMINE DIMESYLATE [Suspect]
     Active Substance: LISDEXAMFETAMINE DIMESYLATE
     Indication: Attention deficit hyperactivity disorder
     Dosage: UNK
     Route: 065

REACTIONS (10)
  - Loss of consciousness [Unknown]
  - Thinking abnormal [Unknown]
  - Fall [Unknown]
  - Hyperhidrosis [Unknown]
  - Visual impairment [Unknown]
  - Loss of personal independence in daily activities [Unknown]
  - Dizziness [Unknown]
  - Palpitations [Unknown]
  - Therapeutic response changed [Unknown]
  - Product substitution issue [Unknown]
